FAERS Safety Report 13858560 (Version 1)
Quarter: 2017Q3

REPORT INFORMATION
  Report Type: Spontaneous
  Country: US (occurrence: US)
  Receive Date: 20170810
  Receipt Date: 20170810
  Transmission Date: 20171127
  Serious: Yes (Other)
  Sender: FDA-Public Use
  Company Number: None

PATIENT
  Age: 80 Year
  Sex: Female
  Weight: 94.5 kg

DRUGS (9)
  1. MAGNESIUM AND ZINC TABS [Concomitant]
  2. OXYGEN EQUIPMENT [Concomitant]
  3. HIGH POTENCY CALCIUM [Concomitant]
  4. POTASSIUM CHLORIDE TB 10MEQ SR MC [Concomitant]
  5. BUMETANIDE. [Concomitant]
     Active Substance: BUMETANIDE
  6. VITAMIN D3 [Concomitant]
     Active Substance: CHOLECALCIFEROL
  7. SMZ TMP DS [Suspect]
     Active Substance: SULFAMETHOXAZOLE\TRIMETHOPRIM
     Indication: BACTERIAL INFECTION
     Dosage: ?          OTHER STRENGTH:DS0800-160;QUANTITY:2 TABLET(S);?
     Route: 048
  8. 81 MG LOW DOSE ASPIRIN [Concomitant]
     Active Substance: ASPIRIN
  9. CENTRUM SILVER WOMEN 50+ [Concomitant]

REACTIONS (6)
  - Headache [None]
  - Oedema peripheral [None]
  - Nausea [None]
  - Diarrhoea [None]
  - Abdominal pain upper [None]
  - Myalgia [None]

NARRATIVE: CASE EVENT DATE: 20170606
